FAERS Safety Report 19125263 (Version 1)
Quarter: 2021Q2

REPORT INFORMATION
  Report Type: Spontaneous
  Country: CN (occurrence: CN)
  Receive Date: 20210412
  Receipt Date: 20210412
  Transmission Date: 20210717
  Serious: Yes (Hospitalization)
  Sender: FDA-Public Use
  Company Number: CN-ABBVIE-21P-035-3855932-00

PATIENT
  Age: 52 Year
  Sex: Male
  Weight: 69 kg

DRUGS (4)
  1. LIPANTHYL [Suspect]
     Active Substance: FENOFIBRATE
     Indication: ACUTE MYOCARDIAL INFARCTION
     Dosage: DAILY DOSE 0.2 GRAM
     Route: 048
     Dates: start: 20210301, end: 20210317
  2. BRILINTA [Suspect]
     Active Substance: TICAGRELOR
     Indication: ACUTE MYOCARDIAL INFARCTION
     Dosage: DAILY DOSE 190 MILLIGRAM
     Route: 048
     Dates: start: 20210301, end: 20210314
  3. BAYASPIRINA [Suspect]
     Active Substance: ASPIRIN
     Indication: ACUTE MYOCARDIAL INFARCTION
     Dosage: DAILY DOSE 0.1 GRAM
     Route: 048
     Dates: start: 20210301, end: 20210317
  4. EZETIMIBE. [Suspect]
     Active Substance: EZETIMIBE
     Indication: ACUTE MYOCARDIAL INFARCTION
     Dosage: DAILY DOSE 10 MILLIGRAM
     Route: 048
     Dates: start: 20210301, end: 20210314

REACTIONS (1)
  - Drug eruption [Recovered/Resolved]

NARRATIVE: CASE EVENT DATE: 20210330
